FAERS Safety Report 10170965 (Version 1)
Quarter: 2014Q2

REPORT INFORMATION
  Report Type: Spontaneous
  Country: GB (occurrence: None)
  Receive Date: 20140424
  Receipt Date: 20140424
  Transmission Date: 20141212
  Serious: Yes (Other)
  Sender: FDA-Public Use
  Company Number: E2B_00001771

PATIENT
  Age: 21 Year
  Sex: Female
  Weight: 71.21 kg

DRUGS (3)
  1. QUETIAPINE [Suspect]
     Indication: BIPOLAR I DISORDER
     Route: 048
  2. FLUOXETINE (UNKNOWN) [Concomitant]
  3. SERTRALINE (UNKNOWN)(SERTRALINE HYDROCHLORIDE) [Concomitant]

REACTIONS (2)
  - Confusional state [None]
  - Amnesia [None]
